FAERS Safety Report 17974589 (Version 10)
Quarter: 2023Q1

REPORT INFORMATION
  Report Type: Spontaneous
  Country: US (occurrence: US)
  Receive Date: 20200702
  Receipt Date: 20230109
  Transmission Date: 20230417
  Serious: No
  Sender: FDA-Public Use
  Company Number: US-PFIZER INC-2020254734

PATIENT
  Age: 60 Year
  Sex: Male

DRUGS (10)
  1. INLYTA [Suspect]
     Active Substance: AXITINIB
     Dosage: 5 MG
     Dates: start: 20190622
  2. INLYTA [Suspect]
     Active Substance: AXITINIB
     Dosage: UNK
     Dates: start: 20200305
  3. INLYTA [Suspect]
     Active Substance: AXITINIB
     Dosage: 5 MG
     Dates: start: 20200324
  4. INLYTA [Suspect]
     Active Substance: AXITINIB
     Dosage: UNK
     Dates: start: 20200428
  5. INLYTA [Suspect]
     Active Substance: AXITINIB
     Dosage: 5 MG BID 3 WEEKS ON, 1 WEEK OFF
  6. INLYTA [Suspect]
     Active Substance: AXITINIB
     Dosage: UNK, CYCLIC (2 WEEKS ON AND 1 WEEK OFF)
  7. INLYTA [Suspect]
     Active Substance: AXITINIB
     Dosage: 5 MG, CYCLIC, (5 DAYS ON AND 2 DAYS OFF)
     Dates: start: 20200420
  8. INLYTA [Suspect]
     Active Substance: AXITINIB
     Dosage: 5 MG
     Dates: start: 20201202
  9. INLYTA [Suspect]
     Active Substance: AXITINIB
     Dosage: UNK, CYCLIC (5 DAY ON, 2 DAYS OFF)
  10. INLYTA [Suspect]
     Active Substance: AXITINIB
     Dosage: 5 MG
     Dates: start: 20210601

REACTIONS (18)
  - Pain in extremity [Recovering/Resolving]
  - Rash [Unknown]
  - Gait disturbance [Recovering/Resolving]
  - Palmar-plantar erythrodysaesthesia syndrome [Recovering/Resolving]
  - Cough [Unknown]
  - Fatigue [Unknown]
  - Pruritus [Unknown]
  - Arthralgia [Unknown]
  - Skin exfoliation [Unknown]
  - Scrotal dermatitis [Unknown]
  - Memory impairment [Unknown]
  - Dyspnoea [Recovering/Resolving]
  - Lymphadenopathy [Unknown]
  - Diarrhoea [Unknown]
  - Bone lesion [Unknown]
  - Dyspnoea exertional [Unknown]
  - Off label use [Unknown]
  - Product use issue [Unknown]

NARRATIVE: CASE EVENT DATE: 20190101
